APPROVED DRUG PRODUCT: IDARUBICIN HYDROCHLORIDE
Active Ingredient: IDARUBICIN HYDROCHLORIDE
Strength: 10MG/VIAL
Dosage Form/Route: POWDER;INTRAVENOUS
Application: A065037 | Product #002
Applicant: TEVA PARENTERAL MEDICINES INC
Approved: May 1, 2002 | RLD: No | RS: No | Type: DISCN